FAERS Safety Report 16905294 (Version 4)
Quarter: 2020Q1

REPORT INFORMATION
  Report Type: Spontaneous
  Country: US (occurrence: US)
  Receive Date: 20191010
  Receipt Date: 20200122
  Transmission Date: 20200409
  Serious: Yes (Other)
  Sender: FDA-Public Use
  Company Number: US-SA-2019SA273315

PATIENT
  Age: 64 Year
  Sex: Female
  Weight: 58.97 kg

DRUGS (2)
  1. DUPIXENT [Suspect]
     Active Substance: DUPILUMAB
     Indication: ECZEMA
     Dosage: 300 MG, QOW
     Route: 058
     Dates: start: 20190910, end: 20200102
  2. DUPIXENT [Suspect]
     Active Substance: DUPILUMAB
     Indication: DERMATITIS ATOPIC
     Dosage: 600 MG, 1X
     Route: 058
     Dates: start: 20190827, end: 20190827

REACTIONS (14)
  - Nasopharyngitis [Recovered/Resolved]
  - Sinusitis [Unknown]
  - Raynaud^s phenomenon [Unknown]
  - Erythema [Recovering/Resolving]
  - Pruritus [Recovering/Resolving]
  - Pain in extremity [Recovering/Resolving]
  - Viral infection [Recovered/Resolved]
  - Neck pain [Recovering/Resolving]
  - Dermatitis atopic [Recovering/Resolving]
  - Bronchitis [Recovering/Resolving]
  - Immunosuppression [Unknown]
  - Influenza [Unknown]
  - Eczema [Not Recovered/Not Resolved]
  - White blood cell count decreased [Unknown]

NARRATIVE: CASE EVENT DATE: 20190912
